FAERS Safety Report 25350614 (Version 3)
Quarter: 2025Q2

REPORT INFORMATION
  Report Type: Spontaneous
  Country: US (occurrence: US)
  Receive Date: 20250523
  Receipt Date: 20250625
  Transmission Date: 20250716
  Serious: Yes (Hospitalization, Other)
  Sender: PROCTER AND GAMBLE
  Company Number: US-PROCTER_AND_GAMBLE-PH25006125

PATIENT
  Age: 50 Year
  Sex: Male

DRUGS (1)
  1. CREST PRO-HEALTH (STANNOUS FLUORIDE) [Suspect]
     Active Substance: STANNOUS FLUORIDE
     Indication: Dental disorder prophylaxis
     Dosage: 1 APPLIC, AN INCH LONG, 2 /DAY
     Route: 002
     Dates: start: 202505, end: 20250511

REACTIONS (3)
  - Syncope [Unknown]
  - Hypersensitivity [Recovered/Resolved]
  - Fractured coccyx [Unknown]

NARRATIVE: CASE EVENT DATE: 20250510
